FAERS Safety Report 4786199-6 (Version None)
Quarter: 2005Q3

REPORT INFORMATION
  Report Type: 
  Country: None (occurrence: None)
  Receive Date: 20050930
  Receipt Date: 20050920
  Transmission Date: 20060218
  Serious: Yes (Hospitalization, Other)
  Sender: FDA-Public Use
  Company Number: 2005131318

PATIENT
  Age: 82 Year
  Sex: Female
  Weight: 82.5547 kg

DRUGS (9)
  1. CELEBREX [Suspect]
     Indication: PAIN
     Dosage: 200 MG (200 MG, 1 IN 1 D)
  2. CARDURA [Suspect]
     Indication: HYPERTENSION
     Dosage: 8 MG (4 MG, 2 IN D)
  3. PLAVIX [Suspect]
     Indication: STENT PLACEMENT
     Dates: start: 20050901
  4. TOPROL-XL [Concomitant]
  5. POTASSIUM (POTASSIUM) [Concomitant]
  6. LOMOTIL (ATROPINE SULFATE, DIPHENOXYLATE) [Concomitant]
  7. LEVOXYL [Concomitant]
  8. FUROSEMIDE [Concomitant]
  9. ASPIRIN [Concomitant]

REACTIONS (11)
  - ANGINA PECTORIS [None]
  - CHEST PAIN [None]
  - CORONARY ARTERY OCCLUSION [None]
  - DIZZINESS [None]
  - DYSPNOEA [None]
  - HEADACHE [None]
  - HEART RATE IRREGULAR [None]
  - INTESTINAL OBSTRUCTION [None]
  - LOWER LIMB FRACTURE [None]
  - MIGRAINE [None]
  - TRANSIENT ISCHAEMIC ATTACK [None]
